FAERS Safety Report 21279383 (Version 1)
Quarter: 2022Q3

REPORT INFORMATION
  Report Type: Other
  Country: CN (occurrence: None)
  Receive Date: 20220901
  Receipt Date: 20220901
  Transmission Date: 20221027
  Serious: Yes (Other)
  Sender: FDA-Public Use
  Company Number: CN-ROCHE-3166997

PATIENT

DRUGS (5)
  1. BEVACIZUMAB [Suspect]
     Active Substance: BEVACIZUMAB
     Indication: Colorectal cancer
     Dosage: FOR 1.5 HOUR (H) IF WELL TOLERATED, THE NEXT INFUSION TIME WAS SHORTENED TO 1 H, AND 2 W WAS 1 CYCLE
     Route: 041
  2. RALTITREXED [Suspect]
     Active Substance: RALTITREXED
     Indication: Colorectal cancer
     Route: 065
  3. OXALIPLATIN [Suspect]
     Active Substance: OXALIPLATIN
     Indication: Colorectal cancer
     Route: 041
  4. LEUCOVORIN CALCIUM [Suspect]
     Active Substance: LEUCOVORIN CALCIUM
     Indication: Colorectal cancer
     Route: 041
  5. FLUOROURACIL [Suspect]
     Active Substance: FLUOROURACIL
     Indication: Colorectal cancer
     Route: 065

REACTIONS (1)
  - Renal impairment [Unknown]
